FAERS Safety Report 4665680-4 (Version None)
Quarter: 2005Q2

REPORT INFORMATION
  Report Type: 
  Country: None (occurrence: None)
  Receive Date: 20050517
  Receipt Date: 20050517
  Transmission Date: 20051028
  Serious: No
  Sender: FDA-Public Use
  Company Number: None

PATIENT
  Sex: Male
  Weight: 75.2 kg

DRUGS (3)
  1. INFLIXIMAB [Suspect]
     Indication: NEOPLASM
     Dosage: 5 MG/KG/'DAY, IV IN 250 ML NORMAL SALINE OVER 2HRS IMMEDIATELY BEFORE DOCETAXEL
     Dates: start: 20041201
  2. PLACEBO [Suspect]
     Dosage: SEE IMAGE
  3. DOCETAXEL [Suspect]
     Dosage: SEE IMAGE

REACTIONS (4)
  - CORONARY ARTERY OCCLUSION [None]
  - FALL [None]
  - MYOCARDIAL INFARCTION [None]
  - SUPRAVENTRICULAR TACHYCARDIA [None]
